FAERS Safety Report 6160359-4 (Version None)
Quarter: 2009Q2

REPORT INFORMATION
  Report Type: 
  Country: None (occurrence: None)
  Receive Date: 20090420
  Receipt Date: 20090302
  Transmission Date: 20091009
  Serious: Yes (Hospitalization)
  Sender: FDA-Public Use
  Company Number: FR-PFIZER INC-2008039575

PATIENT
  Sex: Female

DRUGS (2)
  1. XALATAN [Suspect]
     Indication: EXTRAOCULAR MUSCLE DISORDER
     Route: 047
     Dates: start: 20041201
  2. COSOPT [Suspect]
     Indication: EXTRAOCULAR MUSCLE DISORDER
     Route: 047

REACTIONS (3)
  - CHOROID MELANOMA [None]
  - DISEASE PROGRESSION [None]
  - EYE PAIN [None]
